FAERS Safety Report 6857535-1 (Version None)
Quarter: 2010Q3

REPORT INFORMATION
  Report Type: 
  Country: None (occurrence: None)
  Receive Date: 20100719
  Receipt Date: 20080126
  Transmission Date: 20110219
  Serious: No
  Sender: FDA-Public Use
  Company Number: US-PFIZER INC-2008008502

PATIENT
  Sex: Female
  Weight: 54.545 kg

DRUGS (4)
  1. CHANTIX [Suspect]
     Indication: SMOKING CESSATION THERAPY
     Dates: start: 20080119
  2. PROTONIX [Concomitant]
  3. DRUG, UNSPECIFIED [Concomitant]
  4. VITAMINS [Concomitant]

REACTIONS (2)
  - FATIGUE [None]
  - INSOMNIA [None]
